FAERS Safety Report 15579982 (Version 1)
Quarter: 2018Q4

REPORT INFORMATION
  Report Type: Spontaneous
  Country: US (occurrence: US)
  Receive Date: 20181102
  Receipt Date: 20181102
  Transmission Date: 20190205
  Serious: Yes (Hospitalization)
  Sender: FDA-Public Use
  Company Number: US-VIFOR (INTERNATIONAL) INC.-VIT-2018-10665

PATIENT
  Sex: Female

DRUGS (13)
  1. LASIX [Concomitant]
     Active Substance: FUROSEMIDE
  2. LIPITOR [Concomitant]
     Active Substance: ATORVASTATIN CALCIUM
  3. TRULICITY [Concomitant]
     Active Substance: DULAGLUTIDE
  4. VITAMIN D3 [Concomitant]
     Active Substance: CHOLECALCIFEROL
  5. ALPRAZOLAM. [Concomitant]
     Active Substance: ALPRAZOLAM
  6. SYNTHROID [Concomitant]
     Active Substance: LEVOTHYROXINE SODIUM
  7. ALUMINUM HYDROXIDE GEL [Concomitant]
     Active Substance: ALGELDRATE
  8. METOPROLOL TARTRATE. [Concomitant]
     Active Substance: METOPROLOL TARTRATE
  9. MIRTAZAPINE. [Concomitant]
     Active Substance: MIRTAZAPINE
  10. AURYXIA [Concomitant]
     Active Substance: TETRAFERRIC TRICITRATE DECAHYDRATE
  11. PRILOSEC OTC [Concomitant]
     Active Substance: OMEPRAZOLE MAGNESIUM
  12. VELTASSA [Suspect]
     Active Substance: PATIROMER
     Indication: HYPERKALAEMIA
     Route: 048
     Dates: start: 20180707, end: 2018
  13. GABAPENTIN. [Concomitant]
     Active Substance: GABAPENTIN

REACTIONS (2)
  - Surgery [Unknown]
  - Blood potassium increased [Unknown]

NARRATIVE: CASE EVENT DATE: 2018
